FAERS Safety Report 4704047-7 (Version None)
Quarter: 2005Q2

REPORT INFORMATION
  Report Type: 
  Country: None (occurrence: None)
  Receive Date: 20050630
  Receipt Date: 20050621
  Transmission Date: 20051028
  Serious: Yes (Other)
  Sender: FDA-Public Use
  Company Number: CA-ROCHE-408430

PATIENT
  Age: 50 Year
  Sex: Female

DRUGS (2)
  1. XENICAL [Suspect]
     Indication: WEIGHT CONTROL
     Route: 048
     Dates: start: 20050501, end: 20050531
  2. MULTIVITAMIN NOS [Concomitant]
     Route: 048
     Dates: start: 20050515

REACTIONS (8)
  - ABDOMINAL DISTENSION [None]
  - ABNORMAL FAECES [None]
  - BACTERIAL INFECTION [None]
  - CONSTIPATION [None]
  - FEMALE GENITAL-DIGESTIVE TRACT FISTULA [None]
  - FISTULA [None]
  - INTESTINAL OBSTRUCTION [None]
  - VAGINAL DISCHARGE [None]
